FAERS Safety Report 8442722-1 (Version None)
Quarter: 2012Q2

REPORT INFORMATION
  Report Type: 
  Country: None (occurrence: None)
  Receive Date: 20120615
  Receipt Date: 20120605
  Transmission Date: 20120825
  Serious: No
  Sender: FDA-Public Use
  Company Number: US-ASTRAZENECA-2012SE37476

PATIENT
  Age: 49 Year
  Sex: Female
  Weight: 72.6 kg

DRUGS (3)
  1. SEROQUEL [Suspect]
     Indication: BIPOLAR DISORDER
     Route: 048
     Dates: start: 20110101
  2. CLONAZEPAM [Concomitant]
  3. CYMBALTA [Concomitant]

REACTIONS (4)
  - MALAISE [None]
  - DRUG DOSE OMISSION [None]
  - GENERAL PHYSICAL CONDITION ABNORMAL [None]
  - BEDRIDDEN [None]
